FAERS Safety Report 4613631-0 (Version None)
Quarter: 2005Q1

REPORT INFORMATION
  Report Type: 
  Country: None (occurrence: None)
  Receive Date: 20050315
  Receipt Date: 20030320
  Transmission Date: 20050727
  Serious: Yes (Death, Hospitalization)
  Sender: FDA-Public Use
  Company Number: 5025

PATIENT
  Age: 74 Year
  Sex: Female

DRUGS (12)
  1. MIDAZOLAM [Suspect]
     Indication: SENSORY DISTURBANCE
     Dosage: 3 MG ONCE
     Dates: start: 20010227
  2. FENTANYL [Suspect]
     Indication: SENSORY DISTURBANCE
     Dates: start: 20010227
  3. ONDANSETRON [Suspect]
     Indication: SENSORY DISTURBANCE
     Dosage: 4 MG ONCE
     Dates: start: 20010227
  4. PROPOFOL [Suspect]
     Indication: SENSORY DISTURBANCE
     Dosage: 200 MG TOTAL
     Dates: start: 20010227
  5. LIGNOCAINE [Suspect]
     Dates: start: 20010227
  6. ROCURONIUM BROMIDE [Suspect]
     Dates: start: 20010227
  7. IRBESARTAN [Concomitant]
  8. INDAPAMIDE [Concomitant]
  9. PRAVASTATIN SODIUM [Concomitant]
  10. BETAHISTINE [Concomitant]
  11. PIROXICAM [Concomitant]
  12. OXYGEN [Concomitant]

REACTIONS (4)
  - ANAPHYLACTIC REACTION [None]
  - ANGIONEUROTIC OEDEMA [None]
  - CARDIAC ARREST [None]
  - ELECTROCARDIOGRAM ST SEGMENT DEPRESSION [None]
